FAERS Safety Report 12548251 (Version 1)
Quarter: 2016Q3

REPORT INFORMATION
  Report Type: Spontaneous
  Country: US (occurrence: US)
  Receive Date: 20160712
  Receipt Date: 20160712
  Transmission Date: 20161109
  Serious: No
  Sender: FDA-Public Use
  Company Number: US-PFIZER INC-2016337156

PATIENT
  Age: 48 Year
  Sex: Male
  Weight: 79.9 kg

DRUGS (6)
  1. VORICONAZOLE. [Suspect]
     Active Substance: VORICONAZOLE
     Indication: BACTERIAL DISEASE CARRIER
     Dosage: UNK
     Dates: start: 2011, end: 201208
  2. POSACONAZOLE [Concomitant]
     Active Substance: POSACONAZOLE
     Dosage: UNK
     Dates: start: 2011
  3. VORICONAZOLE. [Suspect]
     Active Substance: VORICONAZOLE
     Indication: ASPERGILLUS INFECTION
  4. VORICONAZOLE. [Suspect]
     Active Substance: VORICONAZOLE
     Indication: FUNGAL INFECTION
  5. VORICONAZOLE. [Suspect]
     Active Substance: VORICONAZOLE
     Indication: ALTERNARIA INFECTION
  6. VORICONAZOLE. [Suspect]
     Active Substance: VORICONAZOLE
     Indication: PENICILLIUM INFECTION

REACTIONS (2)
  - Photosensitivity reaction [Unknown]
  - Product use issue [Unknown]
